FAERS Safety Report 4303367-8 (Version None)
Quarter: 2004Q1

REPORT INFORMATION
  Report Type: 
  Country: None (occurrence: None)
  Receive Date: 20040223
  Receipt Date: 20400213
  Transmission Date: 20041129
  Serious: Yes (Hospitalization)
  Sender: FDA-Public Use
  Company Number: 03P-056-0236246-00

PATIENT
  Age: 63 Year
  Sex: Male

DRUGS (9)
  1. BIAXIN [Suspect]
     Indication: DRUG USE FOR UNKNOWN INDICATION
     Dosage: 500 MG, 2 IN 1 D, PER ORAL
     Route: 048
     Dates: start: 20030813, end: 20030908
  2. LAMIVUDINE [Suspect]
     Indication: HIV INFECTION
     Dosage: 300 MG, 1 IN 1 D, PER ORAL
     Route: 048
     Dates: start: 20030826, end: 20030908
  3. TENOFOVIR [Suspect]
     Indication: HIV INFECTION
     Dosage: 1 DOSAEG FORMS, 1 IN 1 D, PER ORAL
     Route: 048
     Dates: start: 20030826, end: 20030908
  4. MONIFLOXACINE [Suspect]
     Indication: MYCOBACTERIAL INFECTION
     Dosage: 400 MG, 1 IN 1 D, PER ORAL
     Route: 048
     Dates: start: 20030813, end: 20030908
  5. BACTRIM [Suspect]
     Indication: MYCOBACTERIAL INFECTION
     Dosage: 1 DOSAGE FORMS, 1 IN 1 D, PER ORAL
     Route: 048
     Dates: start: 20030813, end: 20030908
  6. RIFABUTIN [Suspect]
     Indication: MYCOBACTERIAL INFECTION
     Dosage: 1 DOSAGE FORMS, 3 IN 1 D, PER ORAL
     Route: 048
     Dates: start: 20030813, end: 20030908
  7. ETHAMBUTOL HCL [Concomitant]
  8. STAVUDINE [Concomitant]
  9. SAQUINAVIR [Concomitant]

REACTIONS (7)
  - HYPEREOSINOPHILIC SYNDROME [None]
  - HYPERSENSITIVITY [None]
  - PURPURA [None]
  - PYREXIA [None]
  - RASH PAPULAR [None]
  - STAPHYLOCOCCAL SEPSIS [None]
  - URTICARIA PAPULAR [None]
